FAERS Safety Report 7029122-6 (Version None)
Quarter: 2010Q4

REPORT INFORMATION
  Report Type: 
  Country: None (occurrence: None)
  Receive Date: 20101005
  Receipt Date: 20100930
  Transmission Date: 20110411
  Serious: Yes (Hospitalization)
  Sender: FDA-Public Use
  Company Number: US-RB-011364-10

PATIENT
  Sex: Female

DRUGS (1)
  1. SUBOXONE TABLET [Suspect]
     Indication: DRUG DEPENDENCE
     Route: 060
     Dates: start: 20100301

REACTIONS (4)
  - ADRENAL INSUFFICIENCY [None]
  - ESCHERICHIA INFECTION [None]
  - SEPTIC SHOCK [None]
  - SHOCK [None]
